FAERS Safety Report 14332860 (Version 4)
Quarter: 2019Q2

REPORT INFORMATION
  Report Type: Spontaneous
  Country: US (occurrence: US)
  Receive Date: 20171228
  Receipt Date: 20190418
  Transmission Date: 20190711
  Serious: Yes (Death, Hospitalization, Other)
  Sender: FDA-Public Use
  Company Number: US-PFIZER INC-2017542326

PATIENT
  Age: 63 Year
  Sex: Male
  Weight: 83 kg

DRUGS (13)
  1. BABY ASPIRIN [Concomitant]
     Active Substance: ASPIRIN
     Indication: CARDIAC DISORDER
     Dosage: 81MG ONCE DAILY
     Dates: start: 2007
  2. METOPROLOL. [Concomitant]
     Active Substance: METOPROLOL
     Indication: BLOOD PRESSURE ABNORMAL
     Dosage: 100 MG, 1X/DAY
  3. REVATIO [Suspect]
     Active Substance: SILDENAFIL CITRATE
     Dosage: 20 MG, 3X/DAY
     Route: 048
  4. RENAL CAPS [Concomitant]
     Indication: RENAL DISORDER
     Dosage: UNK, ONCE DAILY
     Dates: start: 2007
  5. REVATIO [Suspect]
     Active Substance: SILDENAFIL CITRATE
     Indication: PULMONARY HYPERTENSION
     Dosage: 20 MG, 3X/DAY
     Route: 048
     Dates: start: 201608
  6. CALCIUM ACETATE. [Concomitant]
     Active Substance: CALCIUM ACETATE
     Indication: BLOOD PHOSPHORUS
     Dosage: 657 MG, UNK WITH FOOD (WITH EACH MEAL/SNACKS, TAKES A MINIMUM OF 3X DAILY)
     Dates: start: 200701
  7. FENOFIBRATE. [Concomitant]
     Active Substance: FENOFIBRATE
     Indication: BLOOD TRIGLYCERIDES
     Dosage: 134 MG ONCE DAILY
     Dates: start: 2008
  8. FLUOXETINE HCL [Concomitant]
     Active Substance: FLUOXETINE HYDROCHLORIDE
     Indication: MENTAL DISORDER
     Dosage: 40MG ONCE DAILY
     Dates: start: 2011
  9. MIDODRINE HCL [Concomitant]
     Active Substance: MIDODRINE HYDROCHLORIDE
     Indication: HYPOTENSION
     Dosage: 10 MG, 3X/DAY
  10. PANTOPRAZOLE SODIUM. [Concomitant]
     Active Substance: PANTOPRAZOLE SODIUM
     Indication: BARTTER^S SYNDROME
     Dosage: 40 MG, 2X/DAY
     Dates: start: 2010
  11. METOPROLOL. [Concomitant]
     Active Substance: METOPROLOL
     Indication: CARDIAC DISORDER
  12. UPTRAVI [Concomitant]
     Active Substance: SELEXIPAG
     Indication: PULMONARY HYPERTENSION
     Dosage: 1600 MG, 2X/DAY
     Dates: start: 201701
  13. LEVOTHYROXINE. [Concomitant]
     Active Substance: LEVOTHYROXINE
     Indication: THYROID DISORDER
     Dosage: 175 UG, 1X/DAY
     Dates: start: 2011

REACTIONS (11)
  - Myocardial infarction [Unknown]
  - Multiple organ dysfunction syndrome [Unknown]
  - Liver disorder [Unknown]
  - Abdominal pain [Unknown]
  - Memory impairment [Unknown]
  - Ascites [Recovering/Resolving]
  - Death [Fatal]
  - Decreased appetite [Unknown]
  - Vital functions abnormal [Unknown]
  - Blood pressure abnormal [Unknown]
  - Pulmonary embolism [Unknown]

NARRATIVE: CASE EVENT DATE: 201706
